FAERS Safety Report 16478952 (Version 4)
Quarter: 2019Q3

REPORT INFORMATION
  Report Type: Spontaneous
  Country: JP (occurrence: JP)
  Receive Date: 20190626
  Receipt Date: 20190709
  Transmission Date: 20191004
  Serious: Yes (Hospitalization, Other)
  Sender: FDA-Public Use
  Company Number: JP-PFIZER INC-2019268874

PATIENT
  Age: 72 Year
  Sex: Male

DRUGS (5)
  1. CEFOTAXIME [Concomitant]
     Active Substance: CEFOTAXIME SODIUM
     Indication: PNEUMONIA
     Dosage: 2 G, 3X/DAY Q8H
     Route: 042
  2. CEFOTAXIME [Concomitant]
     Active Substance: CEFOTAXIME SODIUM
     Indication: PNEUMONITIS
  3. DOXYCYCLIN [DOXYCYCLINE] [Concomitant]
     Active Substance: DOXYCYCLINE
     Indication: PNEUMONITIS
  4. AMIODARONE HCL [Suspect]
     Active Substance: AMIODARONE HYDROCHLORIDE
     Indication: MYOCARDIAL ISCHAEMIA
     Dosage: UNK
  5. DOXYCYCLIN [DOXYCYCLINE] [Concomitant]
     Active Substance: DOXYCYCLINE
     Indication: PNEUMONIA
     Dosage: 200 MG, 1X/DAY QD
     Route: 048

REACTIONS (6)
  - Interstitial lung disease [Unknown]
  - White blood cell count increased [Unknown]
  - Respiratory distress [Unknown]
  - Respiratory disorder [Unknown]
  - Bronchiectasis [Unknown]
  - Respiratory failure [Unknown]
